FAERS Safety Report 16239385 (Version 2)
Quarter: 2019Q3

REPORT INFORMATION
  Report Type: Spontaneous
  Country: JP (occurrence: JP)
  Receive Date: 20190425
  Receipt Date: 20190703
  Transmission Date: 20191004
  Serious: Yes (Hospitalization, Other)
  Sender: FDA-Public Use
  Company Number: JP-BAYER-2019-077908

PATIENT
  Age: 7 Decade
  Sex: Male

DRUGS (1)
  1. STIVARGA [Suspect]
     Active Substance: REGORAFENIB
     Indication: HORMONE-REFRACTORY PROSTATE CANCER
     Dosage: DAILY DOSE 120 MG THREE WEEKS OF CONTINUOUS ADMINISTRATION ONE WEEK REST
     Route: 048
     Dates: start: 20190121, end: 201903

REACTIONS (6)
  - Blood bilirubin increased [Recovered/Resolved]
  - Hormone-refractory prostate cancer [None]
  - Product use in unapproved indication [None]
  - Hepatic function abnormal [Recovered/Resolved]
  - Aspartate aminotransferase decreased [Recovered/Resolved]
  - Off label use [None]

NARRATIVE: CASE EVENT DATE: 201904
